FAERS Safety Report 6758924-6 (Version None)
Quarter: 2010Q2

REPORT INFORMATION
  Report Type: 
  Country: None (occurrence: None)
  Receive Date: 20100603
  Receipt Date: 20100524
  Transmission Date: 20101027
  Serious: Yes (Disabling)
  Sender: FDA-Public Use
  Company Number: CTI_01199_2010

PATIENT
  Age: 70 Year
  Sex: Female

DRUGS (1)
  1. HYOSCYAMINE (ARISTOS PHARMACEUTICALS, INC.) [Suspect]
     Indication: DRUG USE FOR UNKNOWN INDICATION
     Dosage: (TWICE DAILY)

REACTIONS (5)
  - ARTHRALGIA [None]
  - GAIT DISTURBANCE [None]
  - MUSCLE SPASMS [None]
  - MYALGIA [None]
  - WALKING AID USER [None]
